FAERS Safety Report 5504709-8 (Version None)
Quarter: 2007Q4

REPORT INFORMATION
  Report Type: 
  Country: None (occurrence: None)
  Receive Date: 20071031
  Receipt Date: 20071019
  Transmission Date: 20080405
  Serious: Yes (Life-Threatening)
  Sender: FDA-Public Use
  Company Number: 2007-03372

PATIENT
  Age: 61 Year

DRUGS (5)
  1. VELCADE [Suspect]
     Indication: MULTIPLE MYELOMA
  2. MELPHALAN (MELPHALAN) VIAL [Suspect]
     Indication: MULTIPLE MYELOMA
     Dosage: 100.00 MG/M2
     Dates: start: 20070910, end: 20070911
  3. VALACYCLOVIR [Concomitant]
  4. LORAZEPAM [Concomitant]
  5. ZOLPIDEM (ZOLPIDEN) [Concomitant]

REACTIONS (5)
  - DYSPNOEA [None]
  - FEBRILE NEUTROPENIA [None]
  - HYPOTENSION [None]
  - MUCOSAL INFLAMMATION [None]
  - RESPIRATORY FAILURE [None]
